FAERS Safety Report 11144793 (Version 1)
Quarter: 2015Q2

REPORT INFORMATION
  Report Type: Spontaneous
  Country: US (occurrence: None)
  Receive Date: 20150526
  Receipt Date: 20150526
  Transmission Date: 20150821
  Serious: Yes (Hospitalization, Other)
  Sender: FDA-Public Use
  Company Number: DEP_02880_2015

PATIENT
  Sex: Female
  Weight: 72.58 kg

DRUGS (2)
  1. NUCYNTA [Suspect]
     Active Substance: TAPENTADOL HYDROCHLORIDE
     Dosage: 1- 2
     Dates: start: 2012
  2. PREDNISONE. [Concomitant]
     Active Substance: PREDNISONE

REACTIONS (4)
  - Meniscus injury [None]
  - Hernia [None]
  - Polymyalgia rheumatica [None]
  - Limb operation [None]

NARRATIVE: CASE EVENT DATE: 2014
